FAERS Safety Report 18142473 (Version 1)
Quarter: 2020Q3

REPORT INFORMATION
  Report Type: Spontaneous
  Country: GB (occurrence: GB)
  Receive Date: 20200812
  Receipt Date: 20200812
  Transmission Date: 20201103
  Serious: Yes (Other)
  Sender: FDA-Public Use
  Company Number: GB-DEXPHARM-20200660

PATIENT
  Age: 72 Year
  Sex: Male
  Weight: 90 kg

DRUGS (10)
  1. TAMSULOSIN HYDROCHLORIDE. [Concomitant]
     Active Substance: TAMSULOSIN HYDROCHLORIDE
     Dates: start: 20200225
  2. OMEPRAZOLE 40 MG GASTRO?RESISTANT CAPSULES [Suspect]
     Active Substance: OMEPRAZOLE
     Dosage: TAKE ONE TO TWO DAILY AS DISCUSSED
  3. FAMOTIDINE. [Concomitant]
     Active Substance: FAMOTIDINE
     Dosage: BEFORE FOOD
     Dates: start: 20200713
  4. SODIUM HYDROGEN CARBONATE [Concomitant]
     Active Substance: SODIUM BICARBONATE
     Dates: start: 20200630, end: 20200707
  5. ATORVASTATIN [Concomitant]
     Active Substance: ATORVASTATIN
     Dosage: NIGHT
     Dates: start: 20190822
  6. CETRABEN EMOLLIENT CREAM [Concomitant]
     Dosage: APPLY
     Dates: start: 20190207
  7. CALCIPOTRIOL [Concomitant]
     Active Substance: CALCIPOTRIENE
     Dosage: APPLY
     Dates: start: 20200325
  8. RAMIPRIL. [Concomitant]
     Active Substance: RAMIPRIL
     Dates: start: 20181129, end: 20200529
  9. OMEPRAZOLE 20 MG GASTRO?RESISTANT CAPSULES [Suspect]
     Active Substance: OMEPRAZOLE
     Dosage: TAKE ONE TO TWO DAILY AS DISCUSSED
     Dates: start: 20200103
  10. BETACAP [Concomitant]
     Dosage: AS DIRECTED
     Dates: start: 20190806

REACTIONS (1)
  - Acute kidney injury [Recovering/Resolving]

NARRATIVE: CASE EVENT DATE: 20200713
